FAERS Safety Report 17153313 (Version 1)
Quarter: 2019Q4

REPORT INFORMATION
  Report Type: Spontaneous
  Country: US (occurrence: US)
  Receive Date: 20191213
  Receipt Date: 20191213
  Transmission Date: 20200122
  Serious: Yes (Other)
  Sender: FDA-Public Use
  Company Number: US-BAYER-2019-221409

PATIENT
  Age: 12 Year
  Sex: Male

DRUGS (1)
  1. LAROTRECTINIB [Suspect]
     Active Substance: LAROTRECTINIB
     Indication: NTRK GENE FUSION OVEREXPRESSION
     Dosage: 100 MG, BID
     Route: 048

REACTIONS (1)
  - Hepatic enzyme increased [None]
